FAERS Safety Report 5956711-X (Version None)
Quarter: 2008Q4

REPORT INFORMATION
  Report Type: 
  Country: None (occurrence: None)
  Receive Date: 20081031
  Receipt Date: 20080807
  Transmission Date: 20090506
  Serious: No
  Sender: FDA-Public Use
  Company Number: 2008PV036386

PATIENT
  Age: 62 Year
  Sex: Male

DRUGS (5)
  1. SYMLIN [Suspect]
     Indication: TYPE 2 DIABETES MELLITUS
     Dosage: 60 MCG;QAM;SC : 120 MCG;QPM;SC : 60 MCG;BID;SC
     Route: 058
     Dates: start: 20080724, end: 20080801
  2. SYMLIN [Suspect]
     Indication: TYPE 2 DIABETES MELLITUS
     Dosage: 60 MCG;QAM;SC : 120 MCG;QPM;SC : 60 MCG;BID;SC
     Route: 058
     Dates: start: 20080801
  3. SYMLIN [Suspect]
     Indication: TYPE 2 DIABETES MELLITUS
     Dosage: 60 MCG;QAM;SC : 120 MCG;QPM;SC : 60 MCG;BID;SC
     Route: 058
     Dates: start: 20080801
  4. METFORMIN HCL [Concomitant]
  5. BYETTA [Concomitant]

REACTIONS (3)
  - COUGH [None]
  - MUSCULOSKELETAL STIFFNESS [None]
  - OROPHARYNGEAL PAIN [None]
